FAERS Safety Report 24930304 (Version 1)
Quarter: 2025Q1

REPORT INFORMATION
  Report Type: Spontaneous
  Country: US (occurrence: US)
  Receive Date: 20250205
  Receipt Date: 20250205
  Transmission Date: 20250408
  Serious: No
  Sender: PFIZER
  Company Number: US-PFIZER INC-PV202500013533

PATIENT
  Age: 91 Year
  Sex: Female

DRUGS (1)
  1. IBRANCE [Suspect]
     Active Substance: PALBOCICLIB

REACTIONS (6)
  - Decreased appetite [Unknown]
  - Insomnia [Unknown]
  - Dizziness [Unknown]
  - Fatigue [Unknown]
  - Constipation [Unknown]
  - Flatulence [Unknown]
